FAERS Safety Report 9305752 (Version 1)
Quarter: 2013Q2

REPORT INFORMATION
  Report Type: Spontaneous
  Country: BR (occurrence: BR)
  Receive Date: 20130523
  Receipt Date: 20130523
  Transmission Date: 20140414
  Serious: Yes (Hospitalization, Other)
  Sender: FDA-Public Use
  Company Number: BR-PFIZER INC-2013153674

PATIENT
  Age: 67 Year
  Sex: Female

DRUGS (15)
  1. FRONTAL [Suspect]
     Dosage: UNK
     Route: 048
     Dates: start: 2009
  2. AAS [Concomitant]
     Dosage: 100 UNK, UNK
  3. LIBIAN [Concomitant]
     Dosage: UNK
  4. ATENOLOL [Concomitant]
     Indication: CARDIAC DISORDER
     Dosage: 25 UNK, UNK
  5. CLOPIDOGREL [Concomitant]
     Indication: CARDIAC DISORDER
     Dosage: 75 UNK, UNK
  6. MONOCORDIL [Concomitant]
     Indication: CARDIAC DISORDER
     Dosage: 20 MG, UNK
  7. D FORT [Concomitant]
     Indication: VITAMIN SUPPLEMENTATION
     Dosage: UNK
  8. LABIRIN [Concomitant]
     Indication: LABYRINTHITIS
     Dosage: 25 UNK, UNK
  9. LIPITOR [Concomitant]
     Indication: BLOOD CHOLESTEROL
     Dosage: 20 UNK, UNK
  10. METADOXIL [Concomitant]
     Indication: LIVER DISORDER
     Dosage: 500 UNK, UNK
  11. MOTILIUM [Concomitant]
     Indication: GASTRIC DISORDER
     Dosage: UNK
  12. PARIET [Concomitant]
     Indication: GASTRITIS
     Dosage: 20 UNK, UNK
  13. PURAN T4 [Concomitant]
     Indication: HYPOTHYROIDISM
     Dosage: UNK
  14. RECONTER [Concomitant]
     Indication: ANTIDEPRESSANT THERAPY
     Dosage: 20 UNK, UNK
  15. RETEMIC UD [Concomitant]
     Indication: URINARY INCONTINENCE
     Dosage: 10 MG, UNK

REACTIONS (2)
  - Infarction [Unknown]
  - Gastric ulcer [Unknown]
